FAERS Safety Report 7760453-8 (Version None)
Quarter: 2011Q3

REPORT INFORMATION
  Report Type: 
  Country: None (occurrence: None)
  Receive Date: 20110919
  Receipt Date: 20110914
  Transmission Date: 20111222
  Serious: Yes (Death)
  Sender: FDA-Public Use
  Company Number: JP-BAYER-2011-086080

PATIENT
  Age: 42 Year
  Sex: Female

DRUGS (8)
  1. STEROID ANTIBACTERIALS [Concomitant]
     Dosage: UNK
     Route: 065
  2. ALENDRONATE SODIUM [Concomitant]
     Dosage: 35 MG, OW
     Route: 048
  3. BETASERON [Suspect]
     Indication: MULTIPLE SCLEROSIS RELAPSE PROPHYLAXIS
     Dosage: 2 MIU, QOD
     Route: 058
     Dates: start: 20110907, end: 20110909
  4. LANSOPRAZOLE [Concomitant]
     Dosage: UNK
     Route: 048
  5. BICILLIN G [Concomitant]
     Dosage: DAILY DOSE .4 MIU
     Route: 048
  6. PREDNISOLONE [Concomitant]
     Dosage: DAILY DOSE 5 MG
     Route: 048
  7. LOXONIN [Concomitant]
     Dosage: DAILY DOSE 60 MG
     Route: 048
  8. INDOMETACIN [Concomitant]
     Dosage: UNK
     Route: 054

REACTIONS (4)
  - CIRCULATORY COLLAPSE [None]
  - MALAISE [None]
  - BLOOD PRESSURE DECREASED [None]
  - ALTERED STATE OF CONSCIOUSNESS [None]
